FAERS Safety Report 18883279 (Version 1)
Quarter: 2021Q1

REPORT INFORMATION
  Report Type: Spontaneous
  Country: US (occurrence: US)
  Receive Date: 20210211
  Receipt Date: 20210211
  Transmission Date: 20210420
  Serious: Yes (Other)
  Sender: FDA-Public Use
  Company Number: None

PATIENT
  Age: 59 Year
  Sex: Female
  Weight: 63 kg

DRUGS (4)
  1. CIPROFLOXACIN HCL [Suspect]
     Active Substance: CIPROFLOXACIN HYDROCHLORIDE
     Indication: COLONIC ABSCESS
     Dosage: ?          QUANTITY:60 TABLET(S);?
     Route: 048
     Dates: start: 20201220, end: 20210130
  2. METRONIDAZOLE. [Concomitant]
     Active Substance: METRONIDAZOLE
  3. MULTI?VITAMIN [Concomitant]
     Active Substance: .ALPHA.-TOCOPHEROL ACETATE, DL-\ASCORBIC ACID\CYANOCOBALAMIN\FLUORIDE ION\FOLIC ACID\NIACIN\PYRIDOXINE\RIBOFLAVIN\THIAMINE\VITAMIN A\VITAMIN D
  4. CIPROFLOXACIN HCL [Suspect]
     Active Substance: CIPROFLOXACIN HYDROCHLORIDE
     Indication: INFECTION
     Dosage: ?          QUANTITY:60 TABLET(S);?
     Route: 048
     Dates: start: 20201220, end: 20210130

REACTIONS (9)
  - Joint stiffness [None]
  - Arthralgia [None]
  - Burning sensation [None]
  - Chills [None]
  - Hypoaesthesia [None]
  - Paraesthesia [None]
  - Pain in extremity [None]
  - Skin tightness [None]
  - Temperature intolerance [None]

NARRATIVE: CASE EVENT DATE: 20210130
